FAERS Safety Report 25872474 (Version 1)
Quarter: 2025Q4

REPORT INFORMATION
  Report Type: Report from Study
  Country: US (occurrence: US)
  Receive Date: 20251002
  Receipt Date: 20251002
  Transmission Date: 20260119
  Serious: Yes (Other)
  Sender: ROCHE
  Company Number: US-ROCHE-10000392169

PATIENT
  Age: 96 Year
  Sex: Male
  Weight: 81.19 kg

DRUGS (16)
  1. ZELBORAF [Suspect]
     Active Substance: VEMURAFENIB
     Indication: Thrombocytopenia
     Route: 048
     Dates: start: 201511
  2. ZELBORAF [Suspect]
     Active Substance: VEMURAFENIB
     Indication: Metastases to lymph nodes
  3. ZELBORAF [Suspect]
     Active Substance: VEMURAFENIB
     Indication: Congenital dyserythropoietic anaemia
  4. ZELBORAF [Suspect]
     Active Substance: VEMURAFENIB
     Indication: Malignant melanoma
  5. ZELBORAF [Suspect]
     Active Substance: VEMURAFENIB
     Indication: Malignant melanoma
  6. ZELBORAF [Suspect]
     Active Substance: VEMURAFENIB
     Indication: Metastatic malignant melanoma
  7. ZELBORAF [Suspect]
     Active Substance: VEMURAFENIB
     Indication: BRAF gene mutation
  8. ASPIRIN [Concomitant]
     Active Substance: ASPIRIN
  9. BISOPROLOL FUMARATE [Concomitant]
     Active Substance: BISOPROLOL FUMARATE
  10. DOXAZOSIN MESYLATE [Concomitant]
     Active Substance: DOXAZOSIN MESYLATE
  11. FISH OIL [Concomitant]
     Active Substance: FISH OIL
  12. LOVASTATIN [Concomitant]
     Active Substance: LOVASTATIN
  13. DIETARY SUPPLEMENT [Concomitant]
     Active Substance: DIETARY SUPPLEMENT
  14. CHROMIUM [Concomitant]
     Active Substance: CHROMIC CHLORIDE\CHROMIUM
  15. FLUTICASONE FUROATE [Concomitant]
     Active Substance: FLUTICASONE FUROATE
  16. TRIAMTERENE [Concomitant]
     Active Substance: TRIAMTERENE

REACTIONS (5)
  - Off label use [Unknown]
  - Thrombocytopenia [Unknown]
  - Squamous cell carcinoma of skin [Not Recovered/Not Resolved]
  - Anaemia [Unknown]
  - Haemoglobin decreased [Unknown]

NARRATIVE: CASE EVENT DATE: 20250601
